FAERS Safety Report 5001673-5 (Version None)
Quarter: 2006Q2

REPORT INFORMATION
  Report Type: 
  Country: None (occurrence: None)
  Receive Date: 20060515
  Receipt Date: 20060228
  Transmission Date: 20061013
  Serious: Yes (Hospitalization)
  Sender: FDA-Public Use
  Company Number: FI-SP-E2006-01069

PATIENT
  Age: 10 Year
  Sex: Male

DRUGS (5)
  1. IMOVAX RABIES I.D. [Suspect]
     Indication: ANIMAL BITE
     Route: 030
     Dates: start: 20050530
  2. PASTEURIZED HUMAN RABIES IMMUNOGLOBULIN [Suspect]
     Indication: ANIMAL BITE
     Route: 030
     Dates: start: 20050523
  3. IMOVAX RABIES I.D. [Suspect]
     Route: 030
     Dates: start: 20050523
  4. IMOVAX RABIES I.D. [Suspect]
     Route: 030
     Dates: start: 20050526
  5. CLAVURION [Suspect]
     Route: 048
     Dates: start: 20050523, end: 20050530

REACTIONS (8)
  - ARTHRALGIA [None]
  - BRONCHOSPASM [None]
  - COUGH [None]
  - PHARYNGITIS [None]
  - PYREXIA [None]
  - SERUM SICKNESS [None]
  - URTICARIA [None]
  - WHEEZING [None]
